FAERS Safety Report 6369648-1 (Version None)
Quarter: 2009Q3

REPORT INFORMATION
  Report Type: 
  Country: None (occurrence: None)
  Receive Date: 20090923
  Receipt Date: 20090914
  Transmission Date: 20100115
  Serious: Yes (Other)
  Sender: FDA-Public Use
  Company Number: US-AMGEN-QUU348199

PATIENT
  Sex: Female
  Weight: 57.2 kg

DRUGS (6)
  1. ENBREL [Suspect]
     Indication: RHEUMATOID ARTHRITIS
     Route: 058
     Dates: start: 19990817
  2. METHOTREXATE [Concomitant]
     Route: 058
     Dates: start: 19980322
  3. ESTER-C [Concomitant]
  4. CALCIUM WITH VITAMIN D [Concomitant]
  5. FOLIC ACID [Concomitant]
  6. CENTRUM [Concomitant]

REACTIONS (4)
  - BREAST CANCER [None]
  - FIBROCYSTIC BREAST DISEASE [None]
  - OESTROGEN RECEPTOR ASSAY POSITIVE [None]
  - PROGESTERONE RECEPTOR ASSAY POSITIVE [None]
